FAERS Safety Report 5649429-4 (Version None)
Quarter: 2008Q1

REPORT INFORMATION
  Report Type: 
  Country: None (occurrence: None)
  Receive Date: 20080304
  Receipt Date: 20080220
  Transmission Date: 20080703
  Serious: Yes (Death, Hospitalization)
  Sender: FDA-Public Use
  Company Number: US-BAYER-200711407BWH

PATIENT
  Age: 70 Year
  Sex: Male
  Weight: 100 kg

DRUGS (35)
  1. SORAFENIB [Suspect]
     Indication: NON-SMALL CELL LUNG CANCER
     Dosage: TOTAL DAILY DOSE: 800 MG  UNIT DOSE: 200 MG
     Route: 048
     Dates: start: 20061110, end: 20061127
  2. SORAFENIB [Suspect]
     Dosage: TOTAL DAILY DOSE: 800 MG  UNIT DOSE: 200 MG
     Route: 048
     Dates: start: 20061222, end: 20070108
  3. SORAFENIB [Suspect]
     Dosage: TOTAL DAILY DOSE: 800 MG  UNIT DOSE: 200 MG
     Route: 048
     Dates: start: 20070202, end: 20070219
  4. SORAFENIB [Suspect]
     Dosage: TOTAL DAILY DOSE: 800 MG  UNIT DOSE: 200 MG
     Route: 048
     Dates: start: 20070316, end: 20070427
  5. SORAFENIB [Suspect]
     Dosage: TOTAL DAILY DOSE: 800 MG  UNIT DOSE: 200 MG
     Route: 048
     Dates: start: 20070112, end: 20070129
  6. SORAFENIB [Suspect]
     Dosage: TOTAL DAILY DOSE: 800 MG  UNIT DOSE: 200 MG
     Route: 048
     Dates: end: 20070514
  7. SORAFENIB [Suspect]
     Dosage: TOTAL DAILY DOSE: 800 MG  UNIT DOSE: 200 MG
     Route: 048
     Dates: start: 20070223, end: 20070312
  8. SORAFENIB [Suspect]
     Dosage: TOTAL DAILY DOSE: 800 MG  UNIT DOSE: 200 MG
     Route: 048
     Dates: start: 20061201, end: 20061218
  9. CARBOPLATIN [Suspect]
     Indication: NON-SMALL CELL LUNG CANCER
     Route: 042
     Dates: start: 20061221, end: 20061221
  10. CARBOPLATIN [Suspect]
     Route: 042
     Dates: start: 20070201, end: 20070201
  11. CARBOPLATIN [Suspect]
     Route: 042
     Dates: start: 20070222, end: 20070222
  12. CARBOPLATIN [Suspect]
     Route: 042
     Dates: start: 20061109, end: 20061109
  13. CARBOPLATIN [Suspect]
     Route: 042
     Dates: start: 20061130, end: 20061130
  14. CARBOPLATIN [Suspect]
     Route: 042
     Dates: start: 20070111, end: 20070111
  15. PACLITAXEL [Suspect]
     Indication: NON-SMALL CELL LUNG CANCER
     Route: 042
     Dates: start: 20061130, end: 20061130
  16. PACLITAXEL [Suspect]
     Route: 042
     Dates: start: 20070111, end: 20070111
  17. PACLITAXEL [Suspect]
     Route: 042
     Dates: start: 20070222, end: 20070222
  18. PACLITAXEL [Suspect]
     Route: 042
     Dates: start: 20070201, end: 20070201
  19. PACLITAXEL [Suspect]
     Route: 042
     Dates: start: 20061221, end: 20061221
  20. PACLITAXEL [Suspect]
     Route: 042
     Dates: start: 20061109, end: 20061109
  21. PRILOSEC [Concomitant]
     Indication: GASTROOESOPHAGEAL REFLUX DISEASE
     Route: 048
     Dates: start: 20070423
  22. IMODIUM [Concomitant]
     Indication: DIARRHOEA
     Route: 048
     Dates: start: 20070101
  23. MAGNESIUM SULFATE [Concomitant]
     Indication: BLOOD MAGNESIUM DECREASED
     Route: 048
     Dates: start: 20061214
  24. LIPITOR [Concomitant]
     Indication: HYPERLIPIDAEMIA
     Route: 048
     Dates: start: 20030101
  25. LIPITOR [Concomitant]
     Route: 048
     Dates: start: 20070501, end: 20070522
  26. ATENOLOL [Concomitant]
     Indication: HYPERTENSION
     Route: 048
     Dates: start: 20020101
  27. ATENOLOL [Concomitant]
     Route: 048
     Dates: start: 20070427, end: 20070522
  28. ASPIRIN [Concomitant]
     Indication: CARDIOVASCULAR DISORDER
     Route: 048
     Dates: start: 20010101
  29. TYLENOL [Concomitant]
     Indication: BACK PAIN
     Route: 048
     Dates: start: 20061007
  30. LEVITRA [Concomitant]
     Indication: ERECTILE DYSFUNCTION
     Route: 048
     Dates: start: 20030101
  31. CALCIUM CARBONATE [Concomitant]
     Indication: MINERAL SUPPLEMENTATION
     Route: 048
     Dates: start: 20030101
  32. DARVOCET-N 100 [Concomitant]
     Indication: BACK PAIN
     Route: 048
     Dates: start: 20060501
  33. BENADRYL [Concomitant]
     Indication: PROPHYLAXIS
     Dates: start: 20070222, end: 20070222
  34. PEPCID [Concomitant]
     Indication: PROPHYLAXIS
     Dates: start: 20070222, end: 20070222
  35. ZOFRAN [Concomitant]
     Indication: PROPHYLAXIS
     Dates: start: 20070222, end: 20070222

REACTIONS (2)
  - COLITIS [None]
  - NON-SMALL CELL LUNG CANCER [None]
